FAERS Safety Report 21690420 (Version 2)
Quarter: 2022Q4

REPORT INFORMATION
  Report Type: Spontaneous
  Country: GB (occurrence: GB)
  Receive Date: 20221206
  Receipt Date: 20221215
  Transmission Date: 20230113
  Serious: Yes (Other)
  Sender: FDA-Public Use
  Company Number: GB-002147023-NVSC2022GB226282

PATIENT
  Age: 40 Year
  Sex: Female
  Weight: 91 kg

DRUGS (52)
  1. DARZALEX [Suspect]
     Active Substance: DARATUMUMAB
     Indication: Plasma cell myeloma
     Route: 065
  2. VELCADE [Suspect]
     Active Substance: BORTEZOMIB
     Indication: Plasma cell myeloma
     Dosage: UNK (CYCLE 8)
     Route: 042
     Dates: start: 20210224
  3. VELCADE [Suspect]
     Active Substance: BORTEZOMIB
     Dosage: UNK (CYCLE 5)
     Route: 042
     Dates: start: 20200911
  4. VELCADE [Suspect]
     Active Substance: BORTEZOMIB
     Dosage: UNK (CYCLE 6)
     Route: 042
     Dates: start: 20201230
  5. VELCADE [Suspect]
     Active Substance: BORTEZOMIB
     Dosage: UNK (CYCLE 2)
     Route: 042
     Dates: start: 20200619
  6. VELCADE [Suspect]
     Active Substance: BORTEZOMIB
     Dosage: UNK (CYCLE 15)
     Route: 042
     Dates: start: 20211124
  7. VELCADE [Suspect]
     Active Substance: BORTEZOMIB
     Dosage: UNK (CYCLE 13)
     Route: 042
     Dates: start: 20210923
  8. VELCADE [Suspect]
     Active Substance: BORTEZOMIB
     Dosage: UNK (CYCLE 1)
     Route: 042
     Dates: start: 20200522
  9. VELCADE [Suspect]
     Active Substance: BORTEZOMIB
     Dosage: UNK (CYCLE 10)
     Route: 042
     Dates: start: 20210421
  10. VELCADE [Suspect]
     Active Substance: BORTEZOMIB
     Dosage: UNK (CYCLE 12)
     Route: 042
     Dates: start: 20210616
  11. VELCADE [Suspect]
     Active Substance: BORTEZOMIB
     Dosage: UNK (CYCLE 3)
     Route: 042
     Dates: start: 20200717
  12. VELCADE [Suspect]
     Active Substance: BORTEZOMIB
     Dosage: UNK (CYCLE 16)
     Route: 042
     Dates: start: 20211222
  13. VELCADE [Suspect]
     Active Substance: BORTEZOMIB
     Dosage: UNK (CYCLE 11)
     Route: 042
     Dates: start: 20210520
  14. VELCADE [Suspect]
     Active Substance: BORTEZOMIB
     Dosage: UNK (CYCLE 7)
     Route: 042
     Dates: start: 20210127
  15. VELCADE [Suspect]
     Active Substance: BORTEZOMIB
     Dosage: UNK (CYCLE 9)
     Route: 042
     Dates: start: 20210324
  16. VELCADE [Suspect]
     Active Substance: BORTEZOMIB
     Dosage: UNK (CYCLE 4)
     Route: 042
     Dates: start: 20200819
  17. VELCADE [Suspect]
     Active Substance: BORTEZOMIB
     Dosage: UNK (CYCLE 14)
     Route: 042
     Dates: start: 20211021
  18. DEXAMETHASONE [Suspect]
     Active Substance: DEXAMETHASONE
     Indication: Product used for unknown indication
     Dosage: UNK (CYCLE 16)
     Route: 065
     Dates: start: 20211222
  19. DEXAMETHASONE [Suspect]
     Active Substance: DEXAMETHASONE
     Dosage: UNK (CYCLE 2)
     Route: 065
     Dates: start: 20200619
  20. DEXAMETHASONE [Suspect]
     Active Substance: DEXAMETHASONE
     Dosage: UNK (CYCLE 13)
     Route: 065
     Dates: start: 20210923
  21. DEXAMETHASONE [Suspect]
     Active Substance: DEXAMETHASONE
     Dosage: UNK (CYCLE 12)
     Route: 065
     Dates: start: 20210616
  22. DEXAMETHASONE [Suspect]
     Active Substance: DEXAMETHASONE
     Dosage: UNK (CYCLE 9)
     Route: 065
     Dates: start: 20210324
  23. DEXAMETHASONE [Suspect]
     Active Substance: DEXAMETHASONE
     Dosage: UNK (CYCLE 4)
     Route: 065
     Dates: start: 20200819
  24. DEXAMETHASONE [Suspect]
     Active Substance: DEXAMETHASONE
     Dosage: UNK (CYCLE 5)
     Route: 065
     Dates: start: 20200911
  25. DEXAMETHASONE [Suspect]
     Active Substance: DEXAMETHASONE
     Dosage: UNK (CYCLE 11)
     Route: 065
     Dates: start: 20210520
  26. DEXAMETHASONE [Suspect]
     Active Substance: DEXAMETHASONE
     Dosage: UNK (CYCLE 15)
     Route: 065
     Dates: start: 20211124
  27. DEXAMETHASONE [Suspect]
     Active Substance: DEXAMETHASONE
     Dosage: UNK (CYCLE 1)
     Route: 065
     Dates: start: 20200522
  28. DEXAMETHASONE [Suspect]
     Active Substance: DEXAMETHASONE
     Dosage: UNK (CYCLE 3)
     Route: 065
     Dates: start: 20200717
  29. DEXAMETHASONE [Suspect]
     Active Substance: DEXAMETHASONE
     Dosage: UNK  (CYCLE 8)
     Route: 065
     Dates: start: 20210224
  30. DEXAMETHASONE [Suspect]
     Active Substance: DEXAMETHASONE
     Dosage: UNK (CYCLE 6)
     Route: 065
     Dates: start: 20201230
  31. DEXAMETHASONE [Suspect]
     Active Substance: DEXAMETHASONE
     Dosage: UNK (CYCLE 14)
     Route: 065
     Dates: start: 20211021
  32. DEXAMETHASONE [Suspect]
     Active Substance: DEXAMETHASONE
     Dosage: UNK (CYCLE 7)
     Route: 065
     Dates: start: 20210127
  33. DEXAMETHASONE [Suspect]
     Active Substance: DEXAMETHASONE
     Dosage: UNK (CYCLE 10)
     Route: 065
     Dates: start: 20210421
  34. PANOBINOSTAT [Suspect]
     Active Substance: PANOBINOSTAT
     Indication: Plasma cell myeloma
     Dosage: UNK (CYCLE 11)
     Route: 065
     Dates: start: 20210520
  35. PANOBINOSTAT [Suspect]
     Active Substance: PANOBINOSTAT
     Dosage: UNK (CYCLE 8)
     Route: 065
     Dates: start: 20210224
  36. PANOBINOSTAT [Suspect]
     Active Substance: PANOBINOSTAT
     Dosage: UNK (CYCLE 10)
     Route: 065
     Dates: start: 20210421
  37. PANOBINOSTAT [Suspect]
     Active Substance: PANOBINOSTAT
     Dosage: UNK (CYCLE 13)
     Route: 065
     Dates: start: 20210923
  38. PANOBINOSTAT [Suspect]
     Active Substance: PANOBINOSTAT
     Dosage: UNK (CYCLE 4)
     Route: 065
     Dates: start: 20200809
  39. PANOBINOSTAT [Suspect]
     Active Substance: PANOBINOSTAT
     Dosage: UNK (CYCLE 16)
     Route: 065
     Dates: start: 20211222
  40. PANOBINOSTAT [Suspect]
     Active Substance: PANOBINOSTAT
     Dosage: UNK  (CYCLE 2)
     Route: 065
     Dates: start: 20200619
  41. PANOBINOSTAT [Suspect]
     Active Substance: PANOBINOSTAT
     Dosage: UNK (CYCLE 12)
     Route: 065
     Dates: start: 20210616
  42. PANOBINOSTAT [Suspect]
     Active Substance: PANOBINOSTAT
     Dosage: UNK (CYCLE 9)
     Route: 065
     Dates: start: 20210324
  43. PANOBINOSTAT [Suspect]
     Active Substance: PANOBINOSTAT
     Dosage: UNK (CYCLE 3)
     Route: 065
     Dates: start: 20200717
  44. PANOBINOSTAT [Suspect]
     Active Substance: PANOBINOSTAT
     Dosage: UNK (CYCLE 14)
     Route: 065
     Dates: start: 20211021
  45. PANOBINOSTAT [Suspect]
     Active Substance: PANOBINOSTAT
     Dosage: UNK (CYCLE 5)
     Route: 065
     Dates: start: 20200911
  46. PANOBINOSTAT [Suspect]
     Active Substance: PANOBINOSTAT
     Dosage: UNK (CYCLE 7)
     Route: 065
     Dates: start: 20210127
  47. PANOBINOSTAT [Suspect]
     Active Substance: PANOBINOSTAT
     Dosage: UNK (CYCLE 1)
     Route: 065
     Dates: start: 20200522
  48. PANOBINOSTAT [Suspect]
     Active Substance: PANOBINOSTAT
     Dosage: UNK (CYCLE 15)
     Route: 065
     Dates: start: 20211124
  49. PANOBINOSTAT [Suspect]
     Active Substance: PANOBINOSTAT
     Dosage: UNK (CYCLE 6)
     Route: 065
     Dates: start: 20201230
  50. PANOBINOSTAT [Suspect]
     Active Substance: PANOBINOSTAT
     Dosage: UNK (CYCLE 4)
     Route: 065
     Dates: start: 20200819
  51. LENOGRASTIM [Concomitant]
     Active Substance: LENOGRASTIM
     Indication: Peripheral sensory neuropathy
     Dosage: UNK
     Route: 065
     Dates: start: 20200819, end: 20210217
  52. LENOGRASTIM [Concomitant]
     Active Substance: LENOGRASTIM
     Indication: Neutropenia
     Dosage: UNK
     Route: 065
     Dates: start: 20210127

REACTIONS (6)
  - Swelling [Recovering/Resolving]
  - Fatigue [Unknown]
  - Feeling abnormal [Recovering/Resolving]
  - Breast abscess [Unknown]
  - Limb discomfort [Recovering/Resolving]
  - Back pain [Recovered/Resolved]

NARRATIVE: CASE EVENT DATE: 20200925
